FAERS Safety Report 4465294-5 (Version None)
Quarter: 2004Q4

REPORT INFORMATION
  Report Type: 
  Country: None (occurrence: None)
  Receive Date: 20041004
  Receipt Date: 20040926
  Transmission Date: 20050328
  Serious: Yes (Disabling)
  Sender: FDA-Public Use
  Company Number: GB-MERCK-0409GBR00262

PATIENT
  Sex: Female

DRUGS (1)
  1. ZOCOR [Suspect]
     Indication: BLOOD CHOLESTEROL INCREASED
     Route: 048
     Dates: start: 19970101

REACTIONS (3)
  - DYSPEPSIA [None]
  - NIGHTMARE [None]
  - PALPITATIONS [None]
